FAERS Safety Report 4366525-2 (Version None)
Quarter: 2004Q2

REPORT INFORMATION
  Report Type: 
  Country: None (occurrence: None)
  Receive Date: 20040524
  Receipt Date: 20040512
  Transmission Date: 20050107
  Serious: Yes (Hospitalization)
  Sender: FDA-Public Use
  Company Number: JP-JNJFOC-20040502761

PATIENT
  Age: 19 Year
  Sex: Male
  Weight: 45 kg

DRUGS (7)
  1. REMICADE [Suspect]
     Indication: CROHN'S DISEASE
     Dosage: SEE IMAGE
     Route: 041
     Dates: start: 20030710, end: 20030710
  2. REMICADE [Suspect]
     Indication: CROHN'S DISEASE
     Dosage: SEE IMAGE
     Route: 041
     Dates: start: 20030725, end: 20030725
  3. REMICADE [Suspect]
     Indication: CROHN'S DISEASE
     Dosage: SEE IMAGE
     Route: 041
     Dates: start: 20030818, end: 20030818
  4. REMICADE [Suspect]
     Indication: CROHN'S DISEASE
     Dosage: SEE IMAGE
     Route: 041
     Dates: start: 20030331, end: 20040331
  5. SULFASALAZINE [Concomitant]
  6. PENTASA [Concomitant]
  7. LOPERMIN C (LOPERAMIDE HYDROCHLORIDE) [Concomitant]

REACTIONS (2)
  - BRAIN ABSCESS [None]
  - ENCEPHALITIS HERPES [None]
